FAERS Safety Report 8837352 (Version 1)
Quarter: 2012Q4

REPORT INFORMATION
  Report Type: Spontaneous
  Country: US (occurrence: None)
  Receive Date: 20121011
  Receipt Date: 20121011
  Transmission Date: 20130627
  Serious: No
  Sender: FDA-Public Use
  Company Number: None

PATIENT
  Age: 62 Year
  Sex: Male
  Weight: 61.24 kg

DRUGS (2)
  1. PROZAC [Suspect]
     Indication: STRESS
     Route: 048
     Dates: start: 20120914, end: 20120923
  2. PROZAC [Suspect]
     Indication: ANXIETY
     Route: 048
     Dates: start: 20120914, end: 20120923

REACTIONS (11)
  - Muscle twitching [None]
  - Insomnia [None]
  - Contusion [None]
  - Retching [None]
  - Eructation [None]
  - Flatulence [None]
  - Decreased appetite [None]
  - Weight decreased [None]
  - Flushing [None]
  - Dysuria [None]
  - Paraesthesia [None]
